FAERS Safety Report 5841746-8 (Version None)
Quarter: 2008Q3

REPORT INFORMATION
  Report Type: 
  Country: None (occurrence: None)
  Receive Date: 20080812
  Receipt Date: 20080801
  Transmission Date: 20090109
  Serious: Yes (Death)
  Sender: FDA-Public Use
  Company Number: JP-JNJFOC-20080705231

PATIENT
  Age: 63 Year
  Sex: Male
  Weight: 54 kg

DRUGS (7)
  1. DUROTEP [Suspect]
     Indication: CANCER PAIN
     Route: 062
  2. HYPEN [Suspect]
     Indication: CANCER PAIN
     Route: 048
  3. OXYCONTIN [Suspect]
     Indication: DRUG USE FOR UNKNOWN INDICATION
     Route: 048
  4. FOIPAN [Concomitant]
     Indication: PANCREATITIS
     Route: 048
  5. PARIET [Concomitant]
     Indication: GASTRIC ULCER
     Route: 048
  6. BASEN [Concomitant]
     Indication: DIABETES MELLITUS
     Route: 048
  7. PAZUCROSS [Concomitant]
     Indication: PYREXIA
     Route: 041

REACTIONS (3)
  - ALTERED STATE OF CONSCIOUSNESS [None]
  - CARDIAC ARREST [None]
  - PANCREATIC CARCINOMA [None]
